FAERS Safety Report 6253174-4 (Version None)
Quarter: 2009Q2

REPORT INFORMATION
  Report Type: 
  Country: None (occurrence: None)
  Receive Date: 20090629
  Receipt Date: 20090629
  Transmission Date: 20091009
  Serious: No
  Sender: FDA-Public Use
  Company Number: None

PATIENT
  Age: 51 Year
  Sex: Male
  Weight: 97.5234 kg

DRUGS (2)
  1. COREG [Suspect]
     Indication: HEART RATE IRREGULAR
     Dosage: 1 TIME
  2. COREG [Suspect]
     Indication: HYPERTENSION
     Dosage: 1 TIME

REACTIONS (14)
  - AGGRESSION [None]
  - CHEST PAIN [None]
  - COUGH [None]
  - DISTURBANCE IN ATTENTION [None]
  - DYSARTHRIA [None]
  - DYSGEUSIA [None]
  - ERUCTATION [None]
  - EYE DISORDER [None]
  - FALL [None]
  - FEELING ABNORMAL [None]
  - HEADACHE [None]
  - NASAL DISORDER [None]
  - RASH [None]
  - SCREAMING [None]
